FAERS Safety Report 23580121 (Version 1)
Quarter: 2024Q1

REPORT INFORMATION
  Report Type: Spontaneous
  Country: ES (occurrence: ES)
  Receive Date: 20240229
  Receipt Date: 20240229
  Transmission Date: 20240409
  Serious: Yes (Hospitalization)
  Sender: FDA-Public Use
  Company Number: ES-ZAMBON SWITZERLAND LTD.-2024-ZAM-ES000012

PATIENT

DRUGS (3)
  1. FOSFOMYCIN TROMETHAMINE [Suspect]
     Active Substance: FOSFOMYCIN TROMETHAMINE
     Indication: Prophylaxis
     Dosage: 3 G, OD
     Route: 065
     Dates: start: 20230210, end: 20240128
  2. LEVOFLOXACIN [Suspect]
     Active Substance: LEVOFLOXACIN
     Indication: Product used for unknown indication
     Dosage: 500 MG, OD
     Route: 048
     Dates: start: 20220225, end: 20240205
  3. HALOPERIDOL [Concomitant]
     Active Substance: HALOPERIDOL
     Indication: Product used for unknown indication
     Dosage: UNK
     Route: 065

REACTIONS (2)
  - Neutropenia [Unknown]
  - Product prescribing error [Recovered/Resolved]

NARRATIVE: CASE EVENT DATE: 20220225
